FAERS Safety Report 5380441-9 (Version None)
Quarter: 2007Q3

REPORT INFORMATION
  Report Type: 
  Country: None (occurrence: None)
  Receive Date: 20070706
  Receipt Date: 20070621
  Transmission Date: 20080115
  Serious: No
  Sender: FDA-Public Use
  Company Number: A0653506A

PATIENT
  Age: 54 Year
  Sex: Female

DRUGS (12)
  1. TYKERB [Suspect]
     Indication: BREAST CANCER
     Dosage: 5TAB PER DAY
     Route: 048
     Dates: start: 20070423
  2. CARBOPLATIN [Concomitant]
  3. AVASTIN [Concomitant]
  4. LEVOXYL [Concomitant]
  5. PROPOXY/APAP [Concomitant]
  6. MULTIPLE VITAMIN [Concomitant]
  7. MAITAKE [Concomitant]
  8. DMBG [Concomitant]
  9. AMBIEN [Concomitant]
  10. ALPRAZOLAM [Concomitant]
  11. ZOFRAN [Concomitant]
  12. LORAZEPAM [Concomitant]

REACTIONS (1)
  - DIARRHOEA [None]
